FAERS Safety Report 4576156-7 (Version None)
Quarter: 2005Q1

REPORT INFORMATION
  Report Type: 
  Country: None (occurrence: None)
  Receive Date: 20050204
  Receipt Date: 20050125
  Transmission Date: 20050727
  Serious: Yes (Hospitalization, Disabling)
  Sender: FDA-Public Use
  Company Number: 2004045858

PATIENT
  Age: 81 Year
  Sex: Female
  Weight: 43 kg

DRUGS (6)
  1. NEURONTIN [Suspect]
     Indication: MYOPATHY
     Dosage: 1200 MG (TID INTERVAL: EVERY DAY)
  2. ACETAMINOPHEN AND TRAMADOL HCL [Concomitant]
  3. DIOSIN (DOSIN) [Concomitant]
  4. ROFECOXIB [Concomitant]
  5. ATORVASTATIN (ATORVASTATIN) [Concomitant]
  6. FLUOXETINE [Concomitant]

REACTIONS (13)
  - CERVICAL MYELOPATHY [None]
  - DIZZINESS [None]
  - DRUG TOLERANCE DECREASED [None]
  - FEELING DRUNK [None]
  - MEDICATION ERROR [None]
  - MUSCULAR WEAKNESS [None]
  - OSTEOARTHRITIS [None]
  - PAIN [None]
  - PARAESTHESIA [None]
  - PARALYSIS [None]
  - SOMNOLENCE [None]
  - SPINAL CORD COMPRESSION [None]
  - VERTIGO [None]
